FAERS Safety Report 12324839 (Version 1)
Quarter: 2016Q2

REPORT INFORMATION
  Report Type: Spontaneous
  Country: US (occurrence: US)
  Receive Date: 20160502
  Receipt Date: 20160502
  Transmission Date: 20160815
  Serious: No
  Sender: FDA-Public Use
  Company Number: US-ASTRAZENECA-2016SE31206

PATIENT
  Sex: Female
  Weight: 63.5 kg

DRUGS (5)
  1. LOSARTAN. [Concomitant]
     Active Substance: LOSARTAN
     Indication: BLOOD PRESSURE ABNORMAL
     Route: 048
  2. SYMBICORT [Suspect]
     Active Substance: BUDESONIDE\FORMOTEROL FUMARATE DIHYDRATE
     Indication: CHRONIC OBSTRUCTIVE PULMONARY DISEASE
     Dosage: 160 / 4.5 MCG 2 PUFFS TWO TIMES A DAY
     Route: 055
  3. ALDONDRONATE [Concomitant]
     Indication: BONE DISORDER
     Route: 048
  4. MULTI VITAMINS [Concomitant]
  5. TUDORZA PRESSAIR [Suspect]
     Active Substance: ACLIDINIUM BROMIDE
     Indication: CHRONIC OBSTRUCTIVE PULMONARY DISEASE
     Route: 055

REACTIONS (4)
  - Intentional product use issue [None]
  - Dysphonia [Unknown]
  - Incorrect dose administered by device [Unknown]
  - Device failure [None]
